FAERS Safety Report 5272369-X (Version None)
Quarter: 2007Q1

REPORT INFORMATION
  Report Type: 
  Country: None (occurrence: None)
  Receive Date: 20061219
  Receipt Date: 20061010
  Transmission Date: 20070707
  Serious: Yes (Hospitalization)
  Sender: FDA-Public Use
  Company Number: US-JNJFOC-20061003079

PATIENT
  Age: 45 Year
  Sex: Female
  Weight: 86.1834 kg

DRUGS (1)
  1. ORTHO EVRA [Suspect]
     Indication: MENORRHAGIA
     Dosage: ORDERED 26-JUL-2003
     Dates: start: 20030801, end: 20031001

REACTIONS (1)
  - DEEP VEIN THROMBOSIS [None]
